FAERS Safety Report 15154911 (Version 1)
Quarter: 2018Q3

REPORT INFORMATION
  Report Type: Spontaneous
  Country: US (occurrence: US)
  Receive Date: 20180717
  Receipt Date: 20180717
  Transmission Date: 20181010
  Serious: No
  Sender: FDA-Public Use
  Company Number: US-TEVA-2018-US-924830

PATIENT
  Age: 69 Year
  Sex: Female

DRUGS (1)
  1. NEFAZODONE [Suspect]
     Active Substance: NEFAZODONE
     Indication: DEPRESSION
     Route: 065

REACTIONS (2)
  - Depression [Unknown]
  - Drug ineffective [Unknown]

NARRATIVE: CASE EVENT DATE: 20180611
